FAERS Safety Report 9687076 (Version 3)
Quarter: 2013Q4

REPORT INFORMATION
  Report Type: Spontaneous
  Country: US (occurrence: US)
  Receive Date: 20131113
  Receipt Date: 20131115
  Transmission Date: 20140711
  Serious: Yes (Hospitalization)
  Sender: FDA-Public Use
  Company Number: US-B.I. PHARMACEUTICALS,INC./RIDGEFIELD-2013-BI-14916BP

PATIENT
  Sex: Male
  Weight: 129.27 kg

DRUGS (8)
  1. PRADAXA [Suspect]
     Indication: ATRIAL FIBRILLATION
     Dosage: 300 MG
     Dates: start: 20110629, end: 20111024
  2. HYDROCODONE [Concomitant]
     Dates: start: 20100129, end: 20121104
  3. LISINOPRIL [Concomitant]
     Dates: start: 2005, end: 2012
  4. FUROSEMIDE [Concomitant]
     Dates: start: 2007, end: 2012
  5. POTASSIUM [Concomitant]
     Dates: start: 2007
  6. COMBIVENT INHALER [Concomitant]
     Dates: start: 2002
  7. OXYGEN [Concomitant]
  8. MAG-OX [Concomitant]
     Dosage: 400 MG

REACTIONS (2)
  - Upper gastrointestinal haemorrhage [Unknown]
  - Anaemia [Unknown]
